FAERS Safety Report 14328589 (Version 1)
Quarter: 2017Q4

REPORT INFORMATION
  Report Type: Report from Study
  Country: GR (occurrence: GR)
  Receive Date: 20171227
  Receipt Date: 20171227
  Transmission Date: 20180321
  Serious: Yes (Other)
  Sender: FDA-Public Use
  Company Number: GR-PFIZER INC-2017547649

PATIENT
  Age: 78 Year
  Sex: Female

DRUGS (15)
  1. ENTRESTO [Suspect]
     Active Substance: SACUBITRIL\VALSARTAN
     Dosage: (SACUBITRIL 49 MG/ VALSARTAN 51 MG), 2X/DAY
     Route: 048
     Dates: start: 20170807, end: 20171026
  2. BISOPROLOL [Concomitant]
     Active Substance: BISOPROLOL
     Dosage: 10 MG, 1X/DAY
     Route: 048
     Dates: start: 20170807
  3. ENTRESTO [Suspect]
     Active Substance: SACUBITRIL\VALSARTAN
     Dosage: (SACUBITRIL 97 MG/ VALSARTAN 103 MG), 2X/DAY
     Route: 048
     Dates: start: 20170609, end: 20170806
  4. ENTRESTO [Suspect]
     Active Substance: SACUBITRIL\VALSARTAN
     Indication: CARDIAC FAILURE CHRONIC
     Dosage: (SACUBITRIL 24MG/ VALSARTAN 26 MG), 2X/DAY
     Route: 048
     Dates: start: 20170310, end: 20170407
  5. ENTRESTO [Suspect]
     Active Substance: SACUBITRIL\VALSARTAN
     Dosage: (SACUBITRIL 97 MG/ VALSARTAN 103 MG) BID
     Route: 048
     Dates: start: 20171027
  6. DIGITALIS [Concomitant]
     Active Substance: DIGITALIS
     Indication: CARDIAC FAILURE CHRONIC
     Dosage: 0.125 MG, UNK
     Route: 048
     Dates: start: 20170609, end: 20170729
  7. DIGITALIS [Concomitant]
     Active Substance: DIGITALIS
     Dosage: 12.5 MG, UNK
     Route: 048
  8. EPLERENONE. [Suspect]
     Active Substance: EPLERENONE
     Indication: CARDIAC FAILURE CONGESTIVE
     Dosage: 25 MG, 1X/DAY
     Route: 048
     Dates: start: 20170609, end: 20170729
  9. ENTRESTO [Suspect]
     Active Substance: SACUBITRIL\VALSARTAN
     Dosage: (SACUBITRIL 49 MG/ VALSARTAN 51 MG), 2X/DAY
     Route: 048
     Dates: start: 20170407, end: 20170609
  10. BISOPROLOL [Concomitant]
     Active Substance: BISOPROLOL
     Indication: CARDIAC FAILURE CHRONIC
     Dosage: 10 MG, 1X/DAY
     Route: 048
     Dates: start: 20170123, end: 20170728
  11. FUROSEMIDE. [Concomitant]
     Active Substance: FUROSEMIDE
     Dosage: 40 MG, 1X/DAY
     Route: 048
     Dates: start: 20170126, end: 20170806
  12. FUROSEMIDE. [Concomitant]
     Active Substance: FUROSEMIDE
     Dosage: 20 MG, 1X/DAY
     Route: 048
     Dates: start: 20170807
  13. BISOPROLOL [Concomitant]
     Active Substance: BISOPROLOL
     Dosage: 5 MG, 3X/DAY
     Route: 048
     Dates: start: 20170729, end: 20170806
  14. FUROSEMIDE. [Concomitant]
     Active Substance: FUROSEMIDE
     Indication: CARDIAC FAILURE CHRONIC
     Dosage: UNK
  15. EPLERENONE. [Suspect]
     Active Substance: EPLERENONE
     Dosage: 25 MG, 1X/DAY
     Route: 048
     Dates: start: 20170807

REACTIONS (3)
  - Cardiac failure [Recovered/Resolved]
  - Condition aggravated [Recovered/Resolved]
  - Hypotension [Recovering/Resolving]

NARRATIVE: CASE EVENT DATE: 20170729
